FAERS Safety Report 5188671-6 (Version None)
Quarter: 2006Q4

REPORT INFORMATION
  Report Type: 
  Country: None (occurrence: None)
  Receive Date: 20061214
  Receipt Date: 20061201
  Transmission Date: 20070319
  Serious: Yes (Other)
  Sender: FDA-Public Use
  Company Number: 2006149454

PATIENT
  Age: 51 Year
  Sex: Female
  Weight: 70.3075 kg

DRUGS (8)
  1. CHANTIX [Suspect]
     Indication: SMOKING CESSATION THERAPY
     Dosage: 2 MG (1 MG, 2 IN 1 D)
     Dates: start: 20061101
  2. LAMICTAL [Concomitant]
  3. LITHIUM CARBONATE [Concomitant]
  4. EFFEXOR [Concomitant]
  5. TRAZODONE HCL [Concomitant]
  6. NASONEX [Concomitant]
  7. PREMARIN [Concomitant]
  8. ATIVAN [Concomitant]

REACTIONS (1)
  - NEPHROLITHIASIS [None]
